FAERS Safety Report 7180391-1 (Version None)
Quarter: 2010Q4

REPORT INFORMATION
  Report Type: 
  Country: None (occurrence: None)
  Receive Date: 20101221
  Receipt Date: 20101213
  Transmission Date: 20110411
  Serious: Yes (Hospitalization)
  Sender: FDA-Public Use
  Company Number: B0672423A

PATIENT
  Age: 75 Year
  Sex: Female
  Weight: 39 kg

DRUGS (2)
  1. VALTREX [Suspect]
     Indication: RASH
     Dosage: 3000MG PER DAY
     Route: 048
     Dates: start: 20091205, end: 20091208
  2. VOLTAREN [Concomitant]
     Indication: PAIN
     Route: 048
     Dates: start: 20091205

REACTIONS (9)
  - ANURIA [None]
  - BLOOD CREATININE INCREASED [None]
  - BLOOD UREA INCREASED [None]
  - HEADACHE [None]
  - HYPONATRAEMIA [None]
  - NAUSEA [None]
  - RASH [None]
  - RENAL FAILURE ACUTE [None]
  - RENAL TUBULAR NECROSIS [None]
